FAERS Safety Report 8162229-9 (Version None)
Quarter: 2012Q1

REPORT INFORMATION
  Report Type: 
  Country: None (occurrence: None)
  Receive Date: 20120224
  Receipt Date: 20111013
  Transmission Date: 20120608
  Serious: No
  Sender: FDA-Public Use
  Company Number: US-BRISTOL-MYERS SQUIBB COMPANY-16159196

PATIENT
  Age: 66 Year
  Sex: Female

DRUGS (3)
  1. HUMALOG [Suspect]
     Dates: start: 20110912
  2. METFORMIN HCL [Suspect]
     Dosage: RECENTLY INCREASED TO 100-120UNITS ONCE DAILY
  3. LANTUS [Suspect]
     Indication: TYPE 2 DIABETES MELLITUS
     Dosage: PARENTARL,INJ,SOL 100IU/ML
     Route: 058

REACTIONS (1)
  - BLOOD GLUCOSE INCREASED [None]
